FAERS Safety Report 10957890 (Version 1)
Quarter: 2015Q1

REPORT INFORMATION
  Report Type: Spontaneous
  Country: FR (occurrence: FR)
  Receive Date: 20150326
  Receipt Date: 20150326
  Transmission Date: 20150721
  Serious: Yes (Hospitalization)
  Sender: FDA-Public Use
  Company Number: FR-UCBSA-2015009456

PATIENT
  Age: 69 Year
  Sex: Male

DRUGS (4)
  1. BISOPROLOL [Suspect]
     Active Substance: BISOPROLOL
     Indication: PRODUCT USED FOR UNKNOWN INDICATION
     Dosage: 12.5 G, ONE TIME DOSE, 10 TABLETS
     Route: 048
     Dates: start: 20150302, end: 20150302
  2. KEPPRA [Suspect]
     Active Substance: LEVETIRACETAM
     Indication: PRODUCT USED FOR UNKNOWN INDICATION
     Dosage: 3G, ONE TIME DOSE
     Route: 048
     Dates: start: 20150302, end: 20150302
  3. IMODIUM [Suspect]
     Active Substance: LOPERAMIDE HYDROCHLORIDE
     Indication: PRODUCT USED FOR UNKNOWN INDICATION
     Dosage: 6 TABLETS (DF), ONE TIME DOSE
     Route: 048
     Dates: start: 20150302, end: 20150302
  4. RITUXIMAB [Concomitant]
     Active Substance: RITUXIMAB
     Indication: MYASTHENIA GRAVIS
     Dosage: UNKNOWN DOSAGE

REACTIONS (6)
  - Vertigo [Recovered/Resolved]
  - Hypothermia [Unknown]
  - Fatigue [Recovered/Resolved]
  - Bradycardia [Recovered/Resolved]
  - Dizziness [Unknown]
  - Intentional overdose [Unknown]

NARRATIVE: CASE EVENT DATE: 20150302
